FAERS Safety Report 4826152-7 (Version None)
Quarter: 2005Q4

REPORT INFORMATION
  Report Type: 
  Country: None (occurrence: None)
  Receive Date: 20051111
  Receipt Date: 20051018
  Transmission Date: 20060501
  Serious: Yes (Other)
  Sender: FDA-Public Use
  Company Number: FR-GLAXOSMITHKLINE-B0398145A

PATIENT
  Age: 30 Year
  Sex: Female

DRUGS (2)
  1. NICOTINE [Suspect]
     Indication: SMOKING CESSATION THERAPY
     Route: 062
  2. ORAL CONTRACEPTIVE [Concomitant]
     Indication: CONTRACEPTION
     Route: 048

REACTIONS (4)
  - ABDOMINAL PAIN UPPER [None]
  - CHEMICAL POISONING [None]
  - INTENTIONAL DRUG MISUSE [None]
  - OEDEMATOUS PANCREATITIS [None]
